FAERS Safety Report 25225545 (Version 1)
Quarter: 2025Q2

REPORT INFORMATION
  Report Type: Spontaneous
  Country: FR (occurrence: FR)
  Receive Date: 20250422
  Receipt Date: 20250422
  Transmission Date: 20250716
  Serious: Yes (Other)
  Sender: CATALYST PHARMA
  Company Number: FR-CATALYSTPHARMACEUTICALPARTNERS-FR-CATA-25-00545

PATIENT
  Age: 32 Year
  Sex: Female

DRUGS (3)
  1. FYCOMPA [Suspect]
     Active Substance: PERAMPANEL
     Indication: Seizure
     Dosage: (4 MILLIGRAM(S), 1 IN 1 TOTAL)
     Route: 048
     Dates: start: 20250305, end: 202503
  2. VALPROATE SODIUM [Suspect]
     Active Substance: VALPROATE SODIUM
     Indication: Epilepsy
     Dosage: (1000 MILLIGRAM(S), 1 IN 1 TOTAL)
     Route: 048
     Dates: start: 20250305, end: 202503
  3. RIVOTRIL [Suspect]
     Active Substance: CLONAZEPAM
     Indication: Epilepsy
     Dosage: (8 MILLIGRAM(S), 1 IN 1 TOTAL)
     Route: 048
     Dates: start: 20250305, end: 202503

REACTIONS (5)
  - Acute respiratory failure [Recovered/Resolved]
  - Hypotonia [Recovered/Resolved]
  - Somnolence [Recovered/Resolved]
  - Constipation [Recovered/Resolved]
  - Wrong schedule [Recovered/Resolved]

NARRATIVE: CASE EVENT DATE: 20250305
